FAERS Safety Report 7498561-1 (Version None)
Quarter: 2011Q2

REPORT INFORMATION
  Report Type: 
  Country: None (occurrence: None)
  Receive Date: 20110516
  Receipt Date: 20110503
  Transmission Date: 20111010
  Serious: Yes (Congenital Anomaly)
  Sender: FDA-Public Use
  Company Number: 030959

PATIENT

DRUGS (4)
  1. CLOBAZAM (CLOBAZAM) [Suspect]
     Indication: EPILEPSY
     Dosage: 10 MG, TRANSPLACENTAL, TRANSPLACENTAL
     Route: 064
  2. LEVETIRACETAM [Suspect]
     Indication: EPILEPSY
     Dosage: 1000 MG, TRANSPLACENTAL, TRANSPLACENTAL
     Route: 064
  3. VALPROIC ACID [Suspect]
     Indication: EPILEPSY
     Dosage: 1000 MG, TRANSPLACENTAL, TRANSPLACENTAL
     Route: 064
  4. LAMOTRIGINE [Suspect]
     Indication: EPILEPSY
     Dosage: 350 MG, TRANSPLACENTAL
     Route: 064

REACTIONS (2)
  - MATERNAL DRUGS AFFECTING FOETUS [None]
  - VENTRICULAR SEPTAL DEFECT [None]
